FAERS Safety Report 24559306 (Version 3)
Quarter: 2024Q4

REPORT INFORMATION
  Report Type: Spontaneous
  Country: US (occurrence: US)
  Receive Date: 20241029
  Receipt Date: 20241226
  Transmission Date: 20250114
  Serious: Yes (Other)
  Sender: AUROBINDO
  Company Number: US-AUROBINDO-AUR-APL-2024-052117

PATIENT
  Age: 33 Year
  Sex: Female

DRUGS (3)
  1. TESTOSTERONE [Suspect]
     Active Substance: TESTOSTERONE
     Indication: Transgender hormonal therapy
     Dosage: UNK
     Route: 065
  2. TESTOSTERONE [Suspect]
     Active Substance: TESTOSTERONE
     Indication: Hormone therapy
     Dosage: 200 MILLIGRAM PER GRAM (TESTOSTERONE 200 MG/ML EVERY 2 WEEKS)
     Route: 065
     Dates: start: 2009
  3. ACETAZOLAMIDE [Concomitant]
     Active Substance: ACETAZOLAMIDE
     Indication: Product used for unknown indication
     Dosage: 250 MILLIGRAM, DAILY
     Route: 065

REACTIONS (5)
  - Cerebrospinal fluid leakage [Unknown]
  - Idiopathic intracranial hypertension [Recovering/Resolving]
  - Papilloedema [Recovering/Resolving]
  - Blood testosterone free increased [Recovering/Resolving]
  - Blood testosterone increased [Unknown]
